FAERS Safety Report 16177313 (Version 1)
Quarter: 2019Q2

REPORT INFORMATION
  Report Type: Spontaneous
  Country: GB (occurrence: GB)
  Receive Date: 20190410
  Receipt Date: 20190410
  Transmission Date: 20190711
  Serious: Yes (Other)
  Sender: FDA-Public Use
  Company Number: GB-ACCORD-119180

PATIENT
  Age: 7 Decade
  Sex: Male

DRUGS (4)
  1. SIROLIMUS. [Interacting]
     Active Substance: SIROLIMUS
     Indication: SKIN CANCER
     Dosage: 1.5 MILLIGRAM DAILY; EVERY MORNING
     Route: 065
     Dates: start: 201509
  2. 5-FLUOROURACIL [Suspect]
     Active Substance: FLUOROURACIL
     Indication: NEOPLASM MALIGNANT
     Route: 061
  3. TACROLIMUS. [Suspect]
     Active Substance: TACROLIMUS
     Indication: PROPHYLAXIS AGAINST TRANSPLANT REJECTION
     Dosage: 3 MILLIGRAM DAILY1.5 MG TWICE DAILY
     Route: 065
     Dates: end: 201509
  4. ACITRETIN. [Interacting]
     Active Substance: ACITRETIN
     Indication: SKIN CANCER
     Dosage: LOW DOSE
     Route: 065

REACTIONS (1)
  - Squamous cell carcinoma [Unknown]
